FAERS Safety Report 18421328 (Version 2)
Quarter: 2020Q4

REPORT INFORMATION
  Report Type: Report from Study
  Country: FR (occurrence: FR)
  Receive Date: 20201023
  Receipt Date: 20201103
  Transmission Date: 20210114
  Serious: Yes (Hospitalization)
  Sender: FDA-Public Use
  Company Number: FR-BRISTOL-MYERS SQUIBB COMPANY-BMS-2019-123045

PATIENT
  Age: 31 Year
  Sex: Female
  Weight: 70 kg

DRUGS (5)
  1. NIVOLUMAB [Suspect]
     Active Substance: NIVOLUMAB
     Dosage: 210 MILLIGRAM, Q4WK
     Route: 042
     Dates: start: 20190828, end: 20191210
  2. NIVOLUMAB [Suspect]
     Active Substance: NIVOLUMAB
     Indication: MALIGNANT MELANOMA
     Dosage: 3 MG/KG EVERY 3 WEEKS (FIRST 4 INJECTIONS), ACTUAL DOSE 210 MG
     Route: 042
     Dates: start: 20190828
  3. NIVOLUMAB [Suspect]
     Active Substance: NIVOLUMAB
     Dosage: UNK
     Route: 065
     Dates: start: 20200505
  4. IPILIMUMAB [Suspect]
     Active Substance: IPILIMUMAB
     Indication: MALIGNANT MELANOMA
     Dosage: 70 MILLIGRAM, EVERY 3 WEEKS
     Route: 042
     Dates: start: 20190828, end: 20191210
  5. METOCLOPRAMIDE. [Concomitant]
     Active Substance: METOCLOPRAMIDE
     Indication: NAUSEA
     Dosage: 10 MILLIGRAM, TID
     Route: 048
     Dates: start: 20191224, end: 20191231

REACTIONS (2)
  - Meningism [Recovered/Resolved]
  - Hypophysitis [Recovered/Resolved]

NARRATIVE: CASE EVENT DATE: 20191222
